FAERS Safety Report 4289433-4 (Version None)
Quarter: 2004Q1

REPORT INFORMATION
  Report Type: 
  Country: None (occurrence: None)
  Receive Date: 20040203
  Receipt Date: 20030826
  Transmission Date: 20041129
  Serious: Yes (Other)
  Sender: FDA-Public Use
  Company Number: 200322880BWH

PATIENT
  Age: 39 Year
  Sex: Female
  Weight: 55.3388 kg

DRUGS (1)
  1. AVELOX [Suspect]
     Indication: SKIN INFECTION
     Dosage: 400 MG, ONCE, ORAL
     Route: 048
     Dates: start: 20030814

REACTIONS (3)
  - CONVULSION [None]
  - MUSCLE TIGHTNESS [None]
  - TREMOR [None]
